FAERS Safety Report 10996865 (Version 1)
Quarter: 2015Q2

REPORT INFORMATION
  Report Type: Spontaneous
  Country: US (occurrence: None)
  Receive Date: 20150407
  Receipt Date: 20150407
  Transmission Date: 20150821
  Serious: Yes (Hospitalization)
  Sender: FDA-Public Use
  Company Number: None

PATIENT
  Age: 59 Year
  Sex: Male
  Weight: 70.4 kg

DRUGS (2)
  1. CLOPIDOGREL [Suspect]
     Active Substance: CLOPIDOGREL BISULFATE
     Indication: VASCULAR OPERATION
     Route: 048
     Dates: start: 20150303, end: 20150303
  2. ASPIRIN. [Suspect]
     Active Substance: ASPIRIN
     Indication: VASCULAR OPERATION
     Route: 048
     Dates: start: 20150303, end: 20150303

REACTIONS (2)
  - Haemorrhage [None]
  - Incision site haemorrhage [None]

NARRATIVE: CASE EVENT DATE: 20150304
